FAERS Safety Report 22845436 (Version 3)
Quarter: 2023Q4

REPORT INFORMATION
  Report Type: Spontaneous
  Country: US (occurrence: US)
  Receive Date: 20230821
  Receipt Date: 20231213
  Transmission Date: 20240110
  Serious: Yes (Other)
  Sender: FDA-Public Use
  Company Number: US-BAYER-2023A115089

PATIENT
  Age: 52 Year
  Sex: Male

DRUGS (1)
  1. JIVI [Suspect]
     Active Substance: DAMOCTOCOG ALFA PEGOL
     Indication: Factor VIII deficiency
     Dosage: 3000 U
     Route: 042
     Dates: start: 202307

REACTIONS (2)
  - Haemorrhage [Recovered/Resolved]
  - Haemorrhage [Recovered/Resolved]
